FAERS Safety Report 25406915 (Version 1)
Quarter: 2025Q2

REPORT INFORMATION
  Report Type: Report from Study
  Country: US (occurrence: US)
  Receive Date: 20250606
  Receipt Date: 20250606
  Transmission Date: 20250717
  Serious: Yes (Other)
  Sender: PHARMING GROUP
  Company Number: US-PHARMING-PHAUS2025000711

PATIENT

DRUGS (1)
  1. RUCONEST [Suspect]
     Active Substance: CONESTAT ALFA
     Indication: Hereditary angioedema with normal C1 esterase inhibitor
     Route: 042

REACTIONS (1)
  - Vein collapse [Unknown]

NARRATIVE: CASE EVENT DATE: 20250512
